FAERS Safety Report 9161113 (Version 1)
Quarter: 2013Q1

REPORT INFORMATION
  Report Type: Spontaneous
  Country: GB (occurrence: GB)
  Receive Date: 20130313
  Receipt Date: 20130313
  Transmission Date: 20140127
  Serious: Yes (Disabling, Other)
  Sender: FDA-Public Use
  Company Number: PHHY2013GB023401

PATIENT
  Age: 41 Year
  Sex: Male

DRUGS (4)
  1. CITALOPRAM [Suspect]
     Indication: DEPRESSION
  2. FLUOXETINE [Concomitant]
  3. LITHIUM [Concomitant]
  4. VALPROATE [Concomitant]

REACTIONS (22)
  - Convulsion [Unknown]
  - Bipolar disorder [Unknown]
  - Apathy [Unknown]
  - Suicide attempt [Unknown]
  - Somnolence [Unknown]
  - Depression [Unknown]
  - Inappropriate affect [Unknown]
  - Insomnia [Unknown]
  - Decreased appetite [Unknown]
  - Weight decreased [Unknown]
  - Feeling abnormal [Unknown]
  - Social avoidant behaviour [Unknown]
  - Anger [Unknown]
  - Aggression [Unknown]
  - Migraine [Unknown]
  - Headache [Unknown]
  - Blindness unilateral [Unknown]
  - Activities of daily living impaired [Unknown]
  - Middle insomnia [Unknown]
  - Eczema [Unknown]
  - Oral pain [Unknown]
  - Drug ineffective [Unknown]
